FAERS Safety Report 8923473 (Version 2)
Quarter: 2013Q1

REPORT INFORMATION
  Report Type: Spontaneous
  Country: US (occurrence: US)
  Receive Date: 20121124
  Receipt Date: 20130301
  Transmission Date: 20140127
  Serious: No
  Sender: FDA-Public Use
  Company Number: US-009507513-1211USA008402

PATIENT
  Sex: Female
  Weight: 50.34 kg

DRUGS (7)
  1. IMPLANON [Suspect]
     Indication: CONTRACEPTION
     Dosage: UNK
     Route: 059
     Dates: start: 20120926, end: 20121119
  2. ZYRTEC [Concomitant]
  3. ZADITOR [Concomitant]
  4. ADVAIR [Concomitant]
  5. ALBUTEROL [Concomitant]
  6. SINGULAIR [Concomitant]
  7. METAMUCIL [Concomitant]

REACTIONS (2)
  - Implant site pain [Not Recovered/Not Resolved]
  - Device dislocation [Unknown]
